FAERS Safety Report 9340326 (Version 1)
Quarter: 2013Q2

REPORT INFORMATION
  Report Type: Spontaneous
  Country: US (occurrence: US)
  Receive Date: 20130610
  Receipt Date: 20130610
  Transmission Date: 20140414
  Serious: Yes (Hospitalization)
  Sender: FDA-Public Use
  Company Number: US-TEVA-410399USA

PATIENT
  Sex: Male

DRUGS (1)
  1. PROGLYCEM SUSPENSION [Suspect]
     Dosage: 100 MILLIGRAM DAILY;

REACTIONS (3)
  - Sarcoma metastatic [Not Recovered/Not Resolved]
  - Pulmonary oedema [Unknown]
  - Dyspnoea [Unknown]
